FAERS Safety Report 9798599 (Version 1)
Quarter: 2014Q1

REPORT INFORMATION
  Report Type: Spontaneous
  Country: US (occurrence: None)
  Receive Date: 20140102
  Receipt Date: 20140102
  Transmission Date: 20141002
  Serious: Yes (Hospitalization)
  Sender: FDA-Public Use
  Company Number: None

PATIENT
  Age: 93 Day
  Sex: Male
  Weight: 74 kg

DRUGS (1)
  1. PRADAXA [Suspect]
     Indication: ATRIAL FIBRILLATION
     Dosage: 1 PILL  BID  ORAL
     Route: 048
     Dates: start: 20130701, end: 20131030

REACTIONS (3)
  - Haemoptysis [None]
  - Lung consolidation [None]
  - Haematuria [None]
